APPROVED DRUG PRODUCT: ABIRATERONE ACETATE
Active Ingredient: ABIRATERONE ACETATE
Strength: 500MG
Dosage Form/Route: TABLET;ORAL
Application: A212462 | Product #002 | TE Code: AB
Applicant: QILU PHARMACEUTICAL CO LTD
Approved: Jun 25, 2021 | RLD: No | RS: No | Type: RX